FAERS Safety Report 25606274 (Version 1)
Quarter: 2025Q3

REPORT INFORMATION
  Report Type: Spontaneous
  Country: US (occurrence: None)
  Receive Date: 20250724
  Receipt Date: 20250724
  Transmission Date: 20251020
  Serious: Yes (unspecified)
  Sender: FDA-CTU
  Company Number: None

PATIENT
  Age: 71 Year
  Sex: Female
  Weight: 53.1 kg

DRUGS (4)
  1. ZYRTEC [Suspect]
     Active Substance: CETIRIZINE HYDROCHLORIDE
     Indication: Urticaria
     Dosage: 1 CAPSULE DAILY ORAL
     Route: 048
     Dates: start: 20250723
  2. XAREKTI [Concomitant]
  3. TIKOSYN [Concomitant]
     Active Substance: DOFETILIDE
  4. CRESTOR [Concomitant]
     Active Substance: ROSUVASTATIN CALCIUM

REACTIONS (2)
  - Atrial fibrillation [None]
  - Syncope [None]

NARRATIVE: CASE EVENT DATE: 20250723
